FAERS Safety Report 4868025-X (Version None)
Quarter: 2005Q4

REPORT INFORMATION
  Report Type: 
  Country: None (occurrence: None)
  Receive Date: 20051229
  Receipt Date: 20051220
  Transmission Date: 20060501
  Serious: Yes (Other)
  Sender: FDA-Public Use
  Company Number: FR-JNJFOC-20040100965

PATIENT
  Age: 70 Year
  Sex: Male

DRUGS (6)
  1. REMICADE [Suspect]
     Indication: RHEUMATOID ARTHRITIS
     Route: 042
  2. CORTANCYL [Suspect]
     Indication: DRUG USE FOR UNKNOWN INDICATION
     Route: 048
  3. NOVATREX [Suspect]
     Indication: DRUG USE FOR UNKNOWN INDICATION
     Route: 048
  4. TILCOTIL [Concomitant]
     Route: 048
  5. VITAMIN D3 [Concomitant]
  6. MOPRAL [Concomitant]
     Route: 048

REACTIONS (6)
  - ABSCESS [None]
  - ERYTHEMA [None]
  - NOCARDIOSIS [None]
  - SUBCUTANEOUS NODULE [None]
  - VISUAL ACUITY REDUCED [None]
  - WOUND [None]
